FAERS Safety Report 7781079-6 (Version None)
Quarter: 2011Q3

REPORT INFORMATION
  Report Type: 
  Country: None (occurrence: None)
  Receive Date: 20110927
  Receipt Date: 20110922
  Transmission Date: 20111222
  Serious: Yes (Other)
  Sender: FDA-Public Use
  Company Number: PHHY2010FR59043

PATIENT
  Age: 38 Year
  Sex: Female

DRUGS (1)
  1. EXTAVIA [Suspect]
     Indication: MULTIPLE SCLEROSIS
     Dosage: 1 ML, QOD
     Dates: start: 20100824

REACTIONS (7)
  - MUSCULOSKELETAL STIFFNESS [None]
  - INJECTION SITE INDURATION [None]
  - PYREXIA [None]
  - AMNESIA [None]
  - FATIGUE [None]
  - AGITATION [None]
  - INJECTION SITE ERYTHEMA [None]
